FAERS Safety Report 5598606-X (Version None)
Quarter: 2008Q1

REPORT INFORMATION
  Report Type: 
  Country: None (occurrence: None)
  Receive Date: 20080122
  Receipt Date: 20070405
  Transmission Date: 20080703
  Serious: No
  Sender: FDA-Public Use
  Company Number: US-BAUSCH-2007BL001104

PATIENT
  Age: 42 Year
  Sex: Female

DRUGS (2)
  1. DESMOPRESSIN ACETATE [Suspect]
     Indication: BRAIN TUMOUR OPERATION
     Route: 045
     Dates: start: 20070301, end: 20070401
  2. DESMOPRESSIN ACETATE [Suspect]
     Route: 045
     Dates: start: 20070301, end: 20070401

REACTIONS (4)
  - ABDOMINAL PAIN [None]
  - CYSTITIS [None]
  - PHARMACEUTICAL PRODUCT COMPLAINT [None]
  - POLLAKIURIA [None]
